FAERS Safety Report 18671558 (Version 1)
Quarter: 2020Q4

REPORT INFORMATION
  Report Type: Spontaneous
  Country: KR (occurrence: KR)
  Receive Date: 20201229
  Receipt Date: 20201229
  Transmission Date: 20210114
  Serious: Yes (Other)
  Sender: FDA-Public Use
  Company Number: KR-SUN PHARMACEUTICAL INDUSTRIES LTD-2020RR-272724

PATIENT
  Age: 19 Year
  Sex: Female

DRUGS (9)
  1. CLONAZEPAM. [Suspect]
     Active Substance: CLONAZEPAM
     Indication: SCHIZOPHRENIA
     Dosage: 3 MILLIGRAM, UNK
     Route: 065
  2. OLANZAPINE. [Suspect]
     Active Substance: OLANZAPINE
     Indication: SCHIZOPHRENIA
     Dosage: 20 MILLIGRAM
     Route: 065
  3. LORAZEPAM. [Suspect]
     Active Substance: LORAZEPAM
     Indication: SCHIZOPHRENIA
     Dosage: 3 MILLIGRAM, UNK
     Route: 065
  4. PALIPERIDONE. [Suspect]
     Active Substance: PALIPERIDONE
     Indication: SCHIZOPHRENIA
     Dosage: 3 MILLIGRAM, UNK
     Route: 065
  5. ARIPIPRAZOLE. [Suspect]
     Active Substance: ARIPIPRAZOLE
     Indication: SCHIZOPHRENIA
     Dosage: 10 MILLIGRAM, UNK
     Route: 065
  6. TETRABENAZINE. [Suspect]
     Active Substance: TETRABENAZINE
     Indication: SCHIZOPHRENIA
     Dosage: 75 MILLIGRAM, UNK
     Route: 065
  7. TRIHEXYPHENIDL [Suspect]
     Active Substance: TRIHEXYPHENIDYL
     Indication: SCHIZOPHRENIA
     Dosage: 12 MILLIGRAM, UNK
     Route: 065
  8. VITAMIN E [Suspect]
     Active Substance: .ALPHA.-TOCOPHEROL
     Indication: SCHIZOPHRENIA
     Dosage: 800 INTERNATIONAL UNIT, UNK
     Route: 065
  9. BENZTROPINE. [Suspect]
     Active Substance: BENZTROPINE
     Indication: SCHIZOPHRENIA
     Dosage: 2 MILLIGRAM, UNK
     Route: 065

REACTIONS (4)
  - Dystonia [Unknown]
  - Therapy partial responder [Unknown]
  - Dyskinesia [Unknown]
  - Drug ineffective [Unknown]
